FAERS Safety Report 7148425-8 (Version None)
Quarter: 2010Q4

REPORT INFORMATION
  Report Type: 
  Country: None (occurrence: None)
  Receive Date: 20101209
  Receipt Date: 20101125
  Transmission Date: 20110411
  Serious: No
  Sender: FDA-Public Use
  Company Number: B0686797A

PATIENT
  Age: 12 Year
  Sex: Male

DRUGS (1)
  1. RELENZA [Suspect]
     Route: 055

REACTIONS (1)
  - OVERDOSE [None]
